FAERS Safety Report 9101881 (Version 1)
Quarter: 2013Q1

REPORT INFORMATION
  Report Type: Spontaneous
  Country: US (occurrence: None)
  Receive Date: 20130220
  Receipt Date: 20130220
  Transmission Date: 20140127
  Serious: No
  Sender: FDA-Public Use
  Company Number: None

PATIENT
  Sex: Female

DRUGS (1)
  1. TIKOSYN [Suspect]
     Dosage: 500MCG  Q12HOURS   ORAL?FROM 4 YEARS AGO  TO  01/07/2013?
     Route: 048
     Dates: end: 20130107

REACTIONS (3)
  - Restlessness [None]
  - Dizziness [None]
  - Balance disorder [None]
